FAERS Safety Report 8236752-2 (Version None)
Quarter: 2012Q1

REPORT INFORMATION
  Report Type: 
  Country: None (occurrence: None)
  Receive Date: 20120323
  Receipt Date: 20120306
  Transmission Date: 20120608
  Serious: Yes (Other)
  Sender: FDA-Public Use
  Company Number: 2012P1004033

PATIENT
  Age: 57 Year
  Sex: Female
  Weight: 54.8852 kg

DRUGS (12)
  1. ASPIRIN [Concomitant]
  2. VICODIN [Concomitant]
  3. WARFARIN SODIUM [Suspect]
     Indication: CARDIAC OPERATION
     Dosage: 3 MG;QD;PO 6 MG;QD;PO 9 MG;5X WEEK;PO 6 MG;2X WEEK;PO
     Route: 048
     Dates: start: 20120202
  4. WARFARIN SODIUM [Suspect]
     Indication: THROMBOSIS PROPHYLAXIS
     Dosage: 3 MG;QD;PO 6 MG;QD;PO 9 MG;5X WEEK;PO 6 MG;2X WEEK;PO
     Route: 048
     Dates: start: 20120202
  5. WARFARIN SODIUM [Suspect]
     Indication: CARDIAC OPERATION
     Dosage: 3 MG;QD;PO 6 MG;QD;PO 9 MG;5X WEEK;PO 6 MG;2X WEEK;PO
     Route: 048
     Dates: start: 20110712, end: 20110101
  6. WARFARIN SODIUM [Suspect]
     Indication: THROMBOSIS PROPHYLAXIS
     Dosage: 3 MG;QD;PO 6 MG;QD;PO 9 MG;5X WEEK;PO 6 MG;2X WEEK;PO
     Route: 048
     Dates: start: 20110712, end: 20110101
  7. WARFARIN SODIUM [Suspect]
     Indication: CARDIAC OPERATION
     Dosage: 3 MG;QD;PO 6 MG;QD;PO 9 MG;5X WEEK;PO 6 MG;2X WEEK;PO
     Route: 048
     Dates: start: 20110101, end: 20120201
  8. WARFARIN SODIUM [Suspect]
     Indication: THROMBOSIS PROPHYLAXIS
     Dosage: 3 MG;QD;PO 6 MG;QD;PO 9 MG;5X WEEK;PO 6 MG;2X WEEK;PO
     Route: 048
     Dates: start: 20110101, end: 20120201
  9. WARFARIN SODIUM [Suspect]
     Indication: CARDIAC OPERATION
     Dosage: 3 MG;QD;PO 6 MG;QD;PO 9 MG;5X WEEK;PO 6 MG;2X WEEK;PO
     Route: 048
     Dates: start: 20120202
  10. WARFARIN SODIUM [Suspect]
     Indication: THROMBOSIS PROPHYLAXIS
     Dosage: 3 MG;QD;PO 6 MG;QD;PO 9 MG;5X WEEK;PO 6 MG;2X WEEK;PO
     Route: 048
     Dates: start: 20120202
  11. METOPROLOL SUCCINATE [Concomitant]
  12. ROBAXIN [Concomitant]

REACTIONS (5)
  - CONTUSION [None]
  - PAIN [None]
  - INTERNATIONAL NORMALISED RATIO DECREASED [None]
  - SWELLING [None]
  - PAIN IN EXTREMITY [None]
